FAERS Safety Report 5151067-7 (Version None)
Quarter: 2006Q4

REPORT INFORMATION
  Report Type: 
  Country: None (occurrence: None)
  Receive Date: 20061115
  Receipt Date: 20061103
  Transmission Date: 20070319
  Serious: Yes (Other)
  Sender: FDA-Public Use
  Company Number: PHHO2006NZ18250

PATIENT
  Sex: Female

DRUGS (6)
  1. CLOZARIL [Suspect]
     Indication: SCHIZOPHRENIA
     Dosage: 400 MG, QD
     Route: 048
     Dates: start: 20060427, end: 20061030
  2. FLUOXETINE [Concomitant]
  3. AUGMENTIN '125' [Concomitant]
  4. VALPROATE SODIUM [Concomitant]
  5. IRON [Concomitant]
  6. OMEPRAZOLE [Concomitant]

REACTIONS (3)
  - INSOMNIA [None]
  - OVERDOSE [None]
  - RESTLESS LEGS SYNDROME [None]
